FAERS Safety Report 5292537-0 (Version None)
Quarter: 2007Q2

REPORT INFORMATION
  Report Type: 
  Country: None (occurrence: None)
  Receive Date: 20070410
  Receipt Date: 20070404
  Transmission Date: 20071010
  Serious: Yes (Other)
  Sender: FDA-Public Use
  Company Number: CA-PFIZER INC-2007026963

PATIENT
  Age: 61 Year
  Sex: Female
  Weight: 70.8 kg

DRUGS (7)
  1. REACTINE [Suspect]
     Indication: HYPERSENSITIVITY
     Dosage: TEXT:10 MG
  2. SUDAFED DECONGESTANT 12 HOUR [Suspect]
     Indication: SINUS CONGESTION
     Dosage: TEXT:1 TABLET
     Route: 048
  3. CELEBREX [Concomitant]
  4. NASONEX [Concomitant]
  5. SALBUTAMOL [Concomitant]
  6. LIPITOR [Concomitant]
  7. PULMICORT [Concomitant]

REACTIONS (5)
  - ASTHMA [None]
  - INCORRECT DRUG ADMINISTRATION DURATION [None]
  - RENAL IMPAIRMENT [None]
  - SINUS POLYP [None]
  - SURGERY [None]
